FAERS Safety Report 20578342 (Version 1)
Quarter: 2022Q1

REPORT INFORMATION
  Report Type: Spontaneous
  Country: US (occurrence: None)
  Receive Date: 20220310
  Receipt Date: 20220310
  Transmission Date: 20220424
  Serious: Yes (Other)
  Sender: FDA-Public Use
  Company Number: None

PATIENT
  Age: 48 Year
  Sex: Female
  Weight: 94.05 kg

DRUGS (9)
  1. GUANFACINE [Suspect]
     Active Substance: GUANFACINE
     Indication: Postural orthostatic tachycardia syndrome
     Dosage: OTHER QUANTITY : 1 TABLET(S);?FREQUENCY : TWICE A DAY;?
     Route: 048
     Dates: start: 20220110, end: 20220310
  2. cromolyn - 200 mg 4X per day [Concomitant]
  3. citalopram - 30 mg/day [Concomitant]
  4. toe to waist compression tights at 30-40mM [Concomitant]
  5. vitamin D3 - 2,000 units/day [Concomitant]
  6. oral electrolytes - 3 L daily melatonin [Concomitant]
  7. 5 mg at bedtime diphendydramine [Concomitant]
  8. CETIRIZINE [Concomitant]
     Active Substance: CETIRIZINE HYDROCHLORIDE
  9. MELATONIN [Concomitant]
     Active Substance: MELATONIN

REACTIONS (6)
  - Drug ineffective [None]
  - Oedema peripheral [None]
  - Oedema peripheral [None]
  - Irritability [None]
  - Hypertension [None]
  - Product substitution issue [None]

NARRATIVE: CASE EVENT DATE: 20220110
